FAERS Safety Report 10341507 (Version 2)
Quarter: 2014Q4

REPORT INFORMATION
  Report Type: Report from Study
  Country: DE (occurrence: DE)
  Receive Date: 20140725
  Receipt Date: 20141006
  Transmission Date: 20150528
  Serious: Yes (Hospitalization)
  Sender: FDA-Public Use
  Company Number: DE-BRISTOL-MYERS SQUIBB COMPANY-21220868

PATIENT
  Age: 73 Year
  Sex: Female

DRUGS (2)
  1. ABATACEPT [Suspect]
     Active Substance: ABATACEPT
     Indication: RHEUMATOID ARTHRITIS
     Dosage: WAS RESTARTED ON 10 APR-2014.
     Dates: start: 201104
  2. METHOTREXATE [Suspect]
     Active Substance: METHOTREXATE

REACTIONS (4)
  - Ileus [Recovered/Resolved]
  - Ovarian adenoma [Recovered/Resolved]
  - Hernia obstructive [Recovered/Resolved]
  - Hypokalaemia [Unknown]

NARRATIVE: CASE EVENT DATE: 20140128
